FAERS Safety Report 20072928 (Version 1)
Quarter: 2021Q4

REPORT INFORMATION
  Report Type: Spontaneous
  Country: FR (occurrence: FR)
  Receive Date: 20211116
  Receipt Date: 20211116
  Transmission Date: 20220303
  Serious: Yes (Hospitalization, Other)
  Sender: FDA-Public Use
  Company Number: FR-AFSSAPS-PO20215413

PATIENT
  Age: 67 Year
  Sex: Female
  Weight: 123 kg

DRUGS (2)
  1. ACETAMINOPHEN [Suspect]
     Active Substance: ACETAMINOPHEN
     Indication: Product used for unknown indication
     Dosage: 18.5 GRAM (PRISE UNIQUE)
     Route: 048
     Dates: start: 20210404, end: 20210404
  2. TRAMADOL [Suspect]
     Active Substance: TRAMADOL
     Indication: Product used for unknown indication
     Dosage: 2.1 GRAM(PRISE UNIQUE)
     Route: 048
     Dates: start: 20210404, end: 20210404

REACTIONS (1)
  - Coma [Recovered/Resolved]

NARRATIVE: CASE EVENT DATE: 20210404
